FAERS Safety Report 5494844-5 (Version None)
Quarter: 2007Q4

REPORT INFORMATION
  Report Type: 
  Country: None (occurrence: None)
  Receive Date: 20071022
  Receipt Date: 20071005
  Transmission Date: 20080405
  Serious: Yes (Death)
  Sender: FDA-Public Use
  Company Number: 2007JP004617

PATIENT
  Age: 71 Year
  Sex: Female

DRUGS (12)
  1. PROGRAF [Suspect]
     Indication: INTERSTITIAL LUNG DISEASE
     Dosage: 0.5 MG, /D, IV NOS; 0.75 MG, /D, IV NOS
     Route: 042
     Dates: start: 20070928, end: 20070928
  2. PROGRAF [Suspect]
     Indication: INTERSTITIAL LUNG DISEASE
     Dosage: 0.5 MG, /D, IV NOS; 0.75 MG, /D, IV NOS
     Route: 042
     Dates: start: 20070929
  3. FUNGUARD(MICAFUNGIN) INJECTION [Suspect]
     Dosage: IV NOS
     Route: 042
  4. MILLISROL (GLYCERYL TRINITRATE) [Concomitant]
  5. CIPROFLAXACIN [Concomitant]
  6. DALACIN [Concomitant]
  7. DOXAZOSIN MESYLATE [Concomitant]
  8. BAKTAR (SULFAMETHOXAZOLE, TRIMETHOPRIM) [Concomitant]
  9. ISONIAZID [Concomitant]
  10. LANSOPRAZOLE [Concomitant]
  11. PREDNISOLONE [Concomitant]
  12. CYCLOSPORINE [Concomitant]

REACTIONS (4)
  - CONDITION AGGRAVATED [None]
  - INTERSTITIAL LUNG DISEASE [None]
  - NO THERAPEUTIC RESPONSE [None]
  - RESPIRATORY FAILURE [None]
